FAERS Safety Report 6906098-0 (Version None)
Quarter: 2010Q3

REPORT INFORMATION
  Report Type: 
  Country: None (occurrence: None)
  Receive Date: 20100802
  Receipt Date: 20100719
  Transmission Date: 20110219
  Serious: Yes (Other)
  Sender: FDA-Public Use
  Company Number: 7012104

PATIENT
  Age: 62 Year
  Sex: Female

DRUGS (4)
  1. REBIF [Suspect]
     Indication: RELAPSING-REMITTING MULTIPLE SCLEROSIS
     Dosage: 22 MCG, 3 IN 1 WK, SUBCUTANEOUS
     Route: 058
     Dates: start: 20020306
  2. DIOSMIN (DIOSMIN) [Concomitant]
  3. TRIPTANOL (AMITRIPTYLINE) [Concomitant]
  4. CAPTOPRIL [Concomitant]

REACTIONS (3)
  - INFECTION [None]
  - OEDEMA PERIPHERAL [None]
  - WOUND NECROSIS [None]
